FAERS Safety Report 7108471-7 (Version None)
Quarter: 2010Q4

REPORT INFORMATION
  Report Type: 
  Country: None (occurrence: None)
  Receive Date: 20101117
  Receipt Date: 20101104
  Transmission Date: 20110411
  Serious: Yes (Hospitalization, Other)
  Sender: FDA-Public Use
  Company Number: US-ELI_LILLY_AND_COMPANY-US201010001258

PATIENT
  Sex: Female

DRUGS (12)
  1. FORTEO [Suspect]
     Indication: OSTEOPOROSIS
     Dosage: 20 UG, DAILY (1/D)
     Route: 065
  2. SYNTHROID [Concomitant]
     Dosage: 75 MG, DAILY (1/D)
     Route: 065
  3. CALCIUM W/VITAMIN D /00188401/ [Concomitant]
     Dosage: 600 MG, 2/D
     Route: 065
  4. EVOXAC [Concomitant]
     Indication: SJOGREN'S SYNDROME
     Dosage: 30 MG, 3/D
     Route: 065
  5. CRESTOR [Concomitant]
     Dosage: 5 MG, DAILY (1/D)
     Route: 065
  6. PREDNISONE [Concomitant]
     Dosage: 100 MG, FOR FIVE DAYS AFTER CHEMOTHERAPY
     Route: 065
  7. PROCHLORPERAZINE [Concomitant]
     Indication: NAUSEA
     Dosage: UNK, AS NEEDED
     Route: 065
  8. ENOXAPARIN SODIUM [Concomitant]
     Dosage: UNK, 2/D
     Route: 065
  9. DEXLANSOPRAZOLE [Concomitant]
     Indication: HYPERCHLORHYDRIA
     Dosage: 60 MG, UNKNOWN
     Route: 065
  10. ALLOPURINOL [Concomitant]
     Dosage: UNK, UNKNOWN
     Route: 065
  11. MULTI-VITAMIN [Concomitant]
     Dosage: UNK, UNKNOWN
     Route: 065
  12. VITAMIN B [Concomitant]
     Dosage: UNK, UNKNOWN
     Route: 065

REACTIONS (4)
  - DEEP VEIN THROMBOSIS [None]
  - NON-HODGKIN'S LYMPHOMA [None]
  - PAIN IN JAW [None]
  - TOOTH DISORDER [None]
